FAERS Safety Report 10336010 (Version 1)
Quarter: 2014Q3

REPORT INFORMATION
  Report Type: Spontaneous
  Country: US (occurrence: US)
  Receive Date: 20140723
  Receipt Date: 20140723
  Transmission Date: 20150326
  Serious: No
  Sender: FDA-Public Use
  Company Number: US-BRISTOL-MYERS SQUIBB COMPANY-19475730

PATIENT
  Age: 79 Year
  Sex: Female
  Weight: 61.22 kg

DRUGS (4)
  1. AMIODARONE [Concomitant]
     Active Substance: AMIODARONE
  2. COUMADIN [Suspect]
     Active Substance: WARFARIN SODIUM
     Indication: ATRIAL FIBRILLATION
     Dates: end: 201309
  3. LIPITOR [Concomitant]
     Active Substance: ATORVASTATIN CALCIUM
  4. COZAAR [Concomitant]
     Active Substance: LOSARTAN POTASSIUM

REACTIONS (1)
  - Contusion [Not Recovered/Not Resolved]
